FAERS Safety Report 8041023-3 (Version None)
Quarter: 2012Q1

REPORT INFORMATION
  Report Type: 
  Country: None (occurrence: None)
  Receive Date: 20120109
  Receipt Date: 20111224
  Transmission Date: 20120608
  Serious: Yes (Hospitalization)
  Sender: FDA-Public Use
  Company Number: UTC-013912

PATIENT
  Age: 73 Year
  Sex: Female
  Weight: 54.5 kg

DRUGS (4)
  1. REMODULIN [Suspect]
     Indication: PULMONARY ARTERIAL HYPERTENSION
     Dosage: 37.44 UG/KG (0.026 UG/KG, 1 IN 1 MIN), SUBCUTANEOUS
     Route: 058
     Dates: start: 20110920
  2. TRACLEER [Concomitant]
  3. VENTAVIS [Concomitant]
  4. REVATIO [Concomitant]

REACTIONS (1)
  - ANAEMIA [None]
